FAERS Safety Report 6375910-9 (Version None)
Quarter: 2009Q3

REPORT INFORMATION
  Report Type: 
  Country: None (occurrence: None)
  Receive Date: 20090924
  Receipt Date: 20090916
  Transmission Date: 20100115
  Serious: Yes (Death, Hospitalization)
  Sender: FDA-Public Use
  Company Number: US-BAXTER-2009BH014187

PATIENT
  Age: 62 Year
  Sex: Male

DRUGS (1)
  1. DIANEAL [Suspect]
     Indication: PERITONEAL DIALYSIS
     Route: 033
     Dates: start: 20070101, end: 20090701

REACTIONS (8)
  - ARTHROPOD BITE [None]
  - BLOOD CALCIUM ABNORMAL [None]
  - BLOOD PHOSPHORUS ABNORMAL [None]
  - CARDIAC ARREST [None]
  - IMPAIRED HEALING [None]
  - PAIN [None]
  - PERITONEAL DIALYSIS COMPLICATION [None]
  - TREATMENT NONCOMPLIANCE [None]
